FAERS Safety Report 10745753 (Version 1)
Quarter: 2015Q1

REPORT INFORMATION
  Report Type: Spontaneous
  Country: US (occurrence: None)
  Receive Date: 20150127
  Receipt Date: 20150127
  Transmission Date: 20150721
  Serious: No
  Sender: FDA-Public Use
  Company Number: None

PATIENT
  Age: 5 Year
  Sex: Female
  Weight: 16.33 kg

DRUGS (2)
  1. PREDNISOLONE SODIUM PHOSPHATE. [Suspect]
     Active Substance: PREDNISOLONE SODIUM PHOSPHATE
     Dosage: 60 SOLUTION PHARMACEUTICAL; 1 TEASPOON, TAKEN BY MOUTH
     Dates: start: 20150122, end: 20150126
  2. PREDNISOLONE SODIUM PHOSPHATE. [Suspect]
     Active Substance: PREDNISOLONE SODIUM PHOSPHATE
     Indication: INFLAMMATION
     Dosage: 60 SOLUTION PHARMACEUTICAL; 1 TEASPOON, TAKEN BY MOUTH
     Dates: start: 20150122, end: 20150126

REACTIONS (7)
  - Anxiety [None]
  - Decreased appetite [None]
  - Crying [None]
  - Abnormal behaviour [None]
  - Unevaluable event [None]
  - Mood swings [None]
  - Aggression [None]

NARRATIVE: CASE EVENT DATE: 20150125
